FAERS Safety Report 4456364-6 (Version None)
Quarter: 2004Q3

REPORT INFORMATION
  Report Type: 
  Country: None (occurrence: None)
  Receive Date: 20040917
  Receipt Date: 20040909
  Transmission Date: 20050211
  Serious: Yes (Other)
  Sender: FDA-Public Use
  Company Number: 2004233166US

PATIENT
  Age: 50 Year
  Sex: Female
  Weight: 81.6 kg

DRUGS (6)
  1. CLEOCIN HCL [Suspect]
     Indication: INFECTION
     Dosage: ORAL
     Route: 048
     Dates: start: 20040501, end: 20040501
  2. CLEOCIN PHOSPHATE [Suspect]
     Indication: INFECTION
     Dosage: INJECTION, IV
     Route: 042
     Dates: start: 20040828, end: 20040829
  3. REPAGLINIDE (REPAGLINIDE) [Concomitant]
  4. HUMULIN 30/70 (INSULIN HUMAN INJECTION ISOPHANE) [Concomitant]
  5. SYNTHROID [Concomitant]
  6. HYDROCHLOROTHIAZIDE [Concomitant]

REACTIONS (6)
  - BLOOD BILIRUBIN INCREASED [None]
  - HEPATIC ENZYME INCREASED [None]
  - PAIN [None]
  - PALPITATIONS [None]
  - SINUSITIS [None]
  - TOOTH INFECTION [None]
